FAERS Safety Report 7451002-2 (Version None)
Quarter: 2011Q2

REPORT INFORMATION
  Report Type: 
  Country: None (occurrence: None)
  Receive Date: 20110502
  Receipt Date: 20110425
  Transmission Date: 20111010
  Serious: Yes (Death, Hospitalization, Other)
  Sender: FDA-Public Use
  Company Number: JP-ROCHE-771626

PATIENT
  Sex: Female

DRUGS (8)
  1. UREPEARL [Concomitant]
     Dosage: DOSAGE ADJUSTED ARBITRARILY
     Route: 003
     Dates: start: 20110118, end: 20110425
  2. PURSENNID [Concomitant]
     Dosage: TAKEN AS NEEDED. 12-24MG
     Route: 048
     Dates: start: 20100803, end: 20110410
  3. MUCOSTA [Concomitant]
     Route: 048
     Dates: start: 20110322, end: 20110410
  4. ANTEBATE [Concomitant]
     Dosage: TAKEN AS NEEDED. DOSAGE ADJUSTED, FORM: OINTMENT AND CREAM
     Route: 003
     Dates: start: 20110208, end: 20110425
  5. CAPECITABINE [Suspect]
     Indication: BREAST CANCER METASTATIC
     Dosage: 2 WEEKS ADMINISTRATION FOLLOWED BY 1 WEEK REST
     Route: 048
     Dates: start: 20110118, end: 20110405
  6. DOCETAXEL [Suspect]
     Indication: BREAST CANCER METASTATIC
     Route: 041
     Dates: start: 20100803, end: 20101228
  7. PYDOXAL [Concomitant]
     Route: 048
     Dates: start: 20110118, end: 20110410
  8. DRENISON [Concomitant]
     Dosage: TAKEN AS NEEDED. DOSAGE ADJUSTED.  DOSE FORM: TAPE.
     Route: 003
     Dates: start: 20110208, end: 20110425

REACTIONS (6)
  - OEDEMA PERIPHERAL [None]
  - HEART RATE DECREASED [None]
  - URINARY TRACT INFECTION [None]
  - DECREASED APPETITE [None]
  - PALMAR-PLANTAR ERYTHRODYSAESTHESIA SYNDROME [None]
  - METASTASES TO MENINGES [None]
